FAERS Safety Report 18973327 (Version 1)
Quarter: 2021Q1

REPORT INFORMATION
  Report Type: Spontaneous
  Country: CA (occurrence: CA)
  Receive Date: 20210305
  Receipt Date: 20210305
  Transmission Date: 20210420
  Serious: Yes (Life-Threatening, Hospitalization, Other)
  Sender: FDA-Public Use
  Company Number: CA-PRINSTON PHARMACEUTICAL INC.-2021PRN00078

PATIENT
  Age: 18 Year
  Sex: Female

DRUGS (3)
  1. VENLAFAXINE [Suspect]
     Active Substance: VENLAFAXINE HYDROCHLORIDE
     Dosage: 150 MG TABLETS X 120 TABLETS (18000 MG)
     Route: 048
  2. FLUOXETINE [Suspect]
     Active Substance: FLUOXETINE HYDROCHLORIDE
     Dosage: 10 MG TABLETS X 30 TABLETS (300 MG)
     Route: 048
  3. DIAZEPAM. [Suspect]
     Active Substance: DIAZEPAM
     Dosage: 5 MG TABLETS X 10 TABLETS (50 MG)
     Route: 048

REACTIONS (6)
  - Seizure [Recovered/Resolved]
  - Cardiomyopathy [Recovered/Resolved]
  - Acute kidney injury [Recovered/Resolved]
  - Body temperature increased [Recovered/Resolved]
  - Pulseless electrical activity [Recovered/Resolved]
  - Intentional overdose [Recovered/Resolved]
